FAERS Safety Report 5788725-7 (Version None)
Quarter: 2008Q2

REPORT INFORMATION
  Report Type: 
  Country: None (occurrence: None)
  Receive Date: 20080626
  Receipt Date: 20080616
  Transmission Date: 20081010
  Serious: Yes (Other)
  Sender: FDA-Public Use
  Company Number: GB-NOVOPROD-276460

PATIENT
  Age: 31 Year
  Sex: Female

DRUGS (5)
  1. NOVORAPID [Suspect]
     Indication: TYPE 2 DIABETES MELLITUS
  2. LEVEMIR [Suspect]
     Indication: TYPE 2 DIABETES MELLITUS
  3. HUMULIN S [Suspect]
     Indication: TYPE 2 DIABETES MELLITUS
     Dosage: 24 IU, QD
     Route: 058
     Dates: start: 20070410
  4. HUMULIN L [Suspect]
     Indication: TYPE 2 DIABETES MELLITUS
     Dosage: 32 IU, QD
     Route: 058
     Dates: start: 20070410
  5. METFORMIN HCL [Concomitant]

REACTIONS (4)
  - ABORTION SPONTANEOUS [None]
  - MALAISE [None]
  - SOMNOLENCE [None]
  - VOMITING [None]
